FAERS Safety Report 13950331 (Version 1)
Quarter: 2017Q3

REPORT INFORMATION
  Report Type: Spontaneous
  Country: DE (occurrence: DE)
  Receive Date: 20170908
  Receipt Date: 20170908
  Transmission Date: 20171128
  Serious: Yes (Hospitalization, Other)
  Sender: FDA-Public Use
  Company Number: DE-BRISTOL-MYERS SQUIBB COMPANY-BMS-2017-070538

PATIENT
  Age: 63 Year
  Sex: Male
  Weight: 96 kg

DRUGS (10)
  1. IPILIMUMAB [Suspect]
     Active Substance: IPILIMUMAB
     Indication: MALIGNANT MELANOMA
     Dosage: UNK MG, UNK
     Route: 042
     Dates: start: 20170515
  2. PANTOZOL [Concomitant]
     Active Substance: PANTOPRAZOLE SODIUM
     Indication: PROPHYLAXIS
     Dosage: UNK
     Route: 048
  3. ATORVASTATIN [Concomitant]
     Active Substance: ATORVASTATIN
     Indication: HYPERCHOLESTEROLAEMIA
     Dosage: UNK
     Route: 048
  4. NOVAMINSULFON [Concomitant]
     Active Substance: METAMIZOLE
     Indication: PAIN
     Route: 065
  5. IPILIMUMAB [Suspect]
     Active Substance: IPILIMUMAB
     Indication: PRODUCT USED FOR UNKNOWN INDICATION
     Dosage: UNK
     Route: 042
     Dates: start: 20170606
  6. HUMALOG [Concomitant]
     Active Substance: INSULIN LISPRO
     Indication: DIABETES MELLITUS
     Dosage: UNK
     Route: 058
  7. ASA [Concomitant]
     Active Substance: ASPIRIN
     Indication: CEREBROVASCULAR ACCIDENT
     Dosage: UNK
     Route: 048
  8. INSULIN GLARGINE [Concomitant]
     Active Substance: INSULIN GLARGINE
     Indication: DIABETES MELLITUS
     Dosage: UNK
     Route: 058
  9. IPILIMUMAB [Suspect]
     Active Substance: IPILIMUMAB
     Indication: PRODUCT USED FOR UNKNOWN INDICATION
     Dosage: UNK
     Route: 042
     Dates: start: 20170623
  10. METFORMIN [Concomitant]
     Active Substance: METFORMIN HYDROCHLORIDE
     Indication: DIABETES MELLITUS
     Dosage: UNK
     Route: 065

REACTIONS (10)
  - Adrenocorticotropic hormone deficiency [Not Recovered/Not Resolved]
  - Blood follicle stimulating hormone decreased [Not Recovered/Not Resolved]
  - Blood luteinising hormone decreased [Not Recovered/Not Resolved]
  - Metastases to bone [Unknown]
  - Hypophysitis [Recovering/Resolving]
  - Weight decreased [Unknown]
  - Malignant neoplasm progression [Unknown]
  - Lymphadenopathy [Unknown]
  - Blood thyroid stimulating hormone decreased [Not Recovered/Not Resolved]
  - General physical health deterioration [Unknown]

NARRATIVE: CASE EVENT DATE: 20170717
